FAERS Safety Report 7519413-4 (Version None)
Quarter: 2011Q2

REPORT INFORMATION
  Report Type: 
  Country: None (occurrence: None)
  Receive Date: 20110602
  Receipt Date: 20110531
  Transmission Date: 20111010
  Serious: Yes (Death)
  Sender: FDA-Public Use
  Company Number: BR-ABBOTT-11P-020-0729505-00

PATIENT
  Sex: Female

DRUGS (2)
  1. HUMIRA [Suspect]
     Indication: RHEUMATOID ARTHRITIS
  2. CITALOPRAM HYDROBROMIDE [Concomitant]
     Indication: HYPERTENSION

REACTIONS (2)
  - ISCHAEMIA [None]
  - CARDIAC ARREST [None]
